FAERS Safety Report 13765015 (Version 1)
Quarter: 2017Q3

REPORT INFORMATION
  Report Type: Spontaneous
  Country: US (occurrence: US)
  Receive Date: 20170718
  Receipt Date: 20170718
  Transmission Date: 20171127
  Serious: Yes (Hospitalization, Other)
  Sender: FDA-Public Use
  Company Number: US-009507513-1707USA004278

PATIENT
  Age: 38 Year
  Sex: Male

DRUGS (3)
  1. DEXAMETHASONE. [Suspect]
     Active Substance: DEXAMETHASONE
     Dosage: 3 TABLETS DAILY
     Route: 048
  2. DEXAMETHASONE. [Suspect]
     Active Substance: DEXAMETHASONE
     Dosage: 4 TABLETS DAILY
     Route: 048
  3. SUTENT [Concomitant]
     Active Substance: SUNITINIB MALATE
     Indication: NEOPLASM MALIGNANT
     Dosage: 1 CAPSULE BY MOUTH EVERY DAY FOR 4 WEEKS EVERY 6 WEEKS
     Route: 048
     Dates: start: 201705

REACTIONS (2)
  - Drug titration error [Unknown]
  - Seizure [Recovering/Resolving]

NARRATIVE: CASE EVENT DATE: 20170606
